FAERS Safety Report 24882340 (Version 1)
Quarter: 2025Q1

REPORT INFORMATION
  Report Type: Spontaneous
  Country: DE (occurrence: DE)
  Receive Date: 20250124
  Receipt Date: 20250124
  Transmission Date: 20250409
  Serious: Yes (Other)
  Sender: TEVA
  Company Number: None

PATIENT
  Age: 43 Year
  Sex: Female
  Weight: 60 kg

DRUGS (4)
  1. TRIMIPRAMINE [Suspect]
     Active Substance: TRIMIPRAMINE
     Indication: Sleep disorder
     Route: 048
     Dates: start: 20111001, end: 20230601
  2. AMITRIPTYLINE [Suspect]
     Active Substance: AMITRIPTYLINE
     Indication: Sleep disorder
     Route: 048
     Dates: start: 20111001, end: 20230601
  3. NOVALGIN (METAMIZOLE SODIUM) [Suspect]
     Active Substance: METAMIZOLE SODIUM
     Indication: Pain
     Route: 048
     Dates: start: 20111001, end: 20230601
  4. MIRTAZAPINE [Suspect]
     Active Substance: MIRTAZAPINE
     Indication: Pain
     Route: 065
     Dates: start: 20111001, end: 20230601

REACTIONS (5)
  - Acute myeloid leukaemia [Recovered/Resolved]
  - Neutropenia [Recovered/Resolved]
  - Agranulocytosis [Recovered/Resolved]
  - Pancytopenia [Recovered/Resolved]
  - Acute promyelocytic leukaemia [Recovered/Resolved]

NARRATIVE: CASE EVENT DATE: 20140707
